FAERS Safety Report 11544426 (Version 1)
Quarter: 2015Q3

REPORT INFORMATION
  Report Type: Spontaneous
  Country: US (occurrence: None)
  Receive Date: 20150923
  Receipt Date: 20150923
  Transmission Date: 20151125
  Serious: No
  Sender: FDA-Public Use
  Company Number: None

PATIENT
  Age: 63 Year
  Sex: Female

DRUGS (5)
  1. AFINITOR [Suspect]
     Active Substance: EVEROLIMUS
     Indication: NEOPLASM MALIGNANT
     Route: 048
     Dates: start: 20150702
  2. AFINITOR [Suspect]
     Active Substance: EVEROLIMUS
     Indication: CEREBRAL DISORDER
     Route: 048
     Dates: start: 20150702
  3. OLANZAPINE. [Concomitant]
     Active Substance: OLANZAPINE
  4. PRAVACHOL [Concomitant]
     Active Substance: PRAVASTATIN SODIUM
  5. EXEMESTANE. [Concomitant]
     Active Substance: EXEMESTANE

REACTIONS (1)
  - Cough [None]

NARRATIVE: CASE EVENT DATE: 201509
